FAERS Safety Report 22277817 (Version 5)
Quarter: 2024Q1

REPORT INFORMATION
  Report Type: Spontaneous
  Country: US (occurrence: US)
  Receive Date: 20230503
  Receipt Date: 20240305
  Transmission Date: 20240410
  Serious: No
  Sender: FDA-Public Use
  Company Number: US-BRISTOL-MYERS SQUIBB COMPANY-2023-061897

PATIENT
  Age: 61 Year
  Sex: Female

DRUGS (1)
  1. POMALYST [Suspect]
     Active Substance: POMALIDOMIDE
     Indication: Plasma cell myeloma
     Dosage: FREQUENCY: DAILY FOR 21 DAYS
     Route: 048

REACTIONS (8)
  - Respiratory tract infection [Unknown]
  - Contusion [Unknown]
  - Muscular weakness [Unknown]
  - Product dose omission issue [Unknown]
  - Pyrexia [Recovered/Resolved]
  - Weight decreased [Unknown]
  - Fatigue [Unknown]
  - Asthenia [Unknown]

NARRATIVE: CASE EVENT DATE: 20230722
